FAERS Safety Report 10061977 (Version 2)
Quarter: 2014Q2

REPORT INFORMATION
  Report Type: Spontaneous
  Country: DE (occurrence: DE)
  Receive Date: 20140407
  Receipt Date: 20140407
  Transmission Date: 20141212
  Serious: Yes (Hospitalization, Other)
  Sender: FDA-Public Use
  Company Number: DE-BAYER-2012-115187

PATIENT
  Sex: Male
  Weight: 75 kg

DRUGS (1)
  1. BETAFERON [Suspect]
     Indication: MULTIPLE SCLEROSIS
     Dosage: UNK

REACTIONS (9)
  - Injection site infection [None]
  - Depression [None]
  - Inflammation [None]
  - Subcutaneous abscess [None]
  - Abdominal wall abscess [None]
  - Skin reaction [None]
  - Dermatitis [None]
  - Fatigue [None]
  - Asthenia [None]
